FAERS Safety Report 7475104-X (Version None)
Quarter: 2011Q2

REPORT INFORMATION
  Report Type: 
  Country: None (occurrence: None)
  Receive Date: 20110512
  Receipt Date: 20110422
  Transmission Date: 20111010
  Serious: No
  Sender: FDA-Public Use
  Company Number: US-B.I. PHARMACEUTICALS,INC./RIDGEFIELD-2011-BP-06530BP

PATIENT
  Sex: Male

DRUGS (7)
  1. OMEGA OIL [Concomitant]
  2. INDAPAMIDE [Concomitant]
     Indication: HYPERTENSION
     Dosage: 2.5 MG
     Route: 048
  3. VERAPAMIL EXTENDED-RELEASE [Concomitant]
     Indication: HEART RATE INCREASED
     Dosage: 20 MG
     Route: 048
  4. ACETAMINOPHEN [Concomitant]
  5. SIMVASTATIN [Concomitant]
     Dosage: 20 MG
  6. FISH OIL [Concomitant]
     Indication: ROUTINE HEALTH MAINTENANCE
     Route: 048
  7. PRADAXA [Suspect]
     Indication: ATRIAL FIBRILLATION
     Dosage: 300 MG
     Route: 048
     Dates: start: 20101101

REACTIONS (2)
  - PAIN [None]
  - ARTHRITIS [None]
